FAERS Safety Report 8832250 (Version 1)
Quarter: 2012Q4

REPORT INFORMATION
  Report Type: 
  Country: US (occurrence: US)
  Receive Date: 20121009
  Receipt Date: 20121009
  Transmission Date: 20130627
  Serious: No
  Sender: FDA-Public Use
  Company Number: US-009507513-1210USA000516

PATIENT
  Age: 49 Year
  Sex: Female

DRUGS (4)
  1. JANUMET [Suspect]
     Dosage: 501000 mg, UNK
  2. LIPITOR [Suspect]
  3. SYNTHROID [Suspect]
     Dosage: 25 Microgram, UNK
  4. GLIPIZIDE XL [Suspect]
     Dosage: 2.5 mg, UNK

REACTIONS (2)
  - Feeling abnormal [Unknown]
  - Rash [Unknown]
